FAERS Safety Report 8626907 (Version 2)
Quarter: 2012Q4

REPORT INFORMATION
  Report Type: 
  Country: US (occurrence: US)
  Receive Date: 20120620
  Receipt Date: 20120925
  Transmission Date: 20130627
  Serious: No
  Sender: FDA-Public Use
  Company Number: US-PFIZER INC-2012146955

PATIENT
  Sex: Male

DRUGS (3)
  1. ZOLOFT [Suspect]
     Indication: DEPRESSION
     Dosage: UNK, 1x/day
  2. EFFEXOR XR [Suspect]
     Indication: DEPRESSION
     Dosage: UNK, 1x/day
     Route: 048
     Dates: end: 201110
  3. ALEVE [Concomitant]
     Indication: ARTHRITIS
     Dosage: UNK

REACTIONS (4)
  - Hypothyroidism [Unknown]
  - Depressed mood [Unknown]
  - Feeling abnormal [Unknown]
  - Irritability [Unknown]
